FAERS Safety Report 9359860 (Version 1)
Quarter: 2013Q2

REPORT INFORMATION
  Report Type: Spontaneous
  Country: US (occurrence: US)
  Receive Date: 20130621
  Receipt Date: 20130621
  Transmission Date: 20140414
  Serious: No
  Sender: FDA-Public Use
  Company Number: US-009507513-1306USA008616

PATIENT
  Sex: Female

DRUGS (1)
  1. NEXPLANON [Suspect]
     Indication: CONTRACEPTION
     Dosage: UNK, FREQUENCY: 1 ROD FOR 3 YEARS
     Route: 059

REACTIONS (2)
  - Hypersensitivity [Unknown]
  - Device difficult to use [Unknown]
